FAERS Safety Report 15134030 (Version 3)
Quarter: 2020Q4

REPORT INFORMATION
  Report Type: Spontaneous
  Country: US (occurrence: US)
  Receive Date: 20180712
  Receipt Date: 20201109
  Transmission Date: 20210113
  Serious: No
  Sender: FDA-Public Use
  Company Number: US-EMD SERONO-9035132

PATIENT
  Sex: Female

DRUGS (2)
  1. REBIF [Suspect]
     Active Substance: INTERFERON BETA-1A
     Dosage: MANUAL
     Route: 058
     Dates: start: 20200722
  2. REBIF [Suspect]
     Active Substance: INTERFERON BETA-1A
     Indication: MULTIPLE SCLEROSIS
     Route: 058

REACTIONS (2)
  - Influenza like illness [Recovering/Resolving]
  - Needle fatigue [Unknown]
